FAERS Safety Report 11005074 (Version 1)
Quarter: 2015Q2

REPORT INFORMATION
  Report Type: Spontaneous
  Country: TR (occurrence: TR)
  Receive Date: 20150409
  Receipt Date: 20150409
  Transmission Date: 20150821
  Serious: Yes (Other)
  Sender: FDA-Public Use
  Company Number: TR-ASTRAZENECA-2015SE31922

PATIENT
  Age: 27 Month
  Sex: Female

DRUGS (16)
  1. PULMICORT TURBUHALER [Suspect]
     Active Substance: BUDESONIDE
     Indication: NASOPHARYNGITIS
     Dosage: 2 TIMES A DAY
     Route: 055
     Dates: start: 20150330, end: 20150401
  2. PULMICORT TURBUHALER [Suspect]
     Active Substance: BUDESONIDE
     Indication: NASOPHARYNGITIS
     Route: 042
     Dates: start: 20150401, end: 20150401
  3. PULMICORT TURBUHALER [Suspect]
     Active Substance: BUDESONIDE
     Indication: BRONCHITIS
     Dosage: 2 TIMES A DAY
     Route: 055
     Dates: start: 20150330, end: 20150401
  4. VENTOLIN [Suspect]
     Active Substance: ALBUTEROL SULFATE
     Indication: NASOPHARYNGITIS
     Dosage: 4 TIMES A DAY
     Route: 055
     Dates: start: 20150330, end: 20150401
  5. VENTOLIN [Suspect]
     Active Substance: ALBUTEROL SULFATE
     Indication: BRONCHITIS
     Route: 042
     Dates: start: 20150401, end: 20150401
  6. PULMICORT TURBUHALER [Suspect]
     Active Substance: BUDESONIDE
     Indication: BRONCHITIS
     Route: 055
     Dates: start: 201501, end: 201501
  7. KLAMER [Concomitant]
     Indication: BRONCHITIS
     Route: 048
     Dates: end: 20150402
  8. PULMICORT TURBUHALER [Suspect]
     Active Substance: BUDESONIDE
     Indication: NASOPHARYNGITIS
     Route: 055
     Dates: start: 201501, end: 201501
  9. MINOSET [Concomitant]
     Active Substance: ACETAMINOPHEN
     Indication: BODY TEMPERATURE INCREASED
  10. VENTOLIN [Suspect]
     Active Substance: ALBUTEROL SULFATE
     Indication: NASOPHARYNGITIS
     Route: 055
     Dates: start: 201501, end: 201501
  11. UNISEF [Concomitant]
     Indication: BRONCHITIS
     Dates: start: 20150330, end: 20150402
  12. ZINCO [Concomitant]
  13. PULMICORT TURBUHALER [Suspect]
     Active Substance: BUDESONIDE
     Indication: BRONCHITIS
     Route: 042
     Dates: start: 20150401, end: 20150401
  14. VENTOLIN [Suspect]
     Active Substance: ALBUTEROL SULFATE
     Indication: BRONCHITIS
     Route: 055
     Dates: start: 201501, end: 201501
  15. VENTOLIN [Suspect]
     Active Substance: ALBUTEROL SULFATE
     Indication: NASOPHARYNGITIS
     Route: 042
     Dates: start: 20150401, end: 20150401
  16. VENTOLIN [Suspect]
     Active Substance: ALBUTEROL SULFATE
     Indication: BRONCHITIS
     Dosage: 4 TIMES A DAY
     Route: 055
     Dates: start: 20150330, end: 20150401

REACTIONS (5)
  - Tachycardia [Recovered/Resolved]
  - Intentional product misuse [Recovered/Resolved]
  - Vomiting [Recovered/Resolved]
  - Tremor [Recovered/Resolved]
  - White blood cell count increased [Unknown]

NARRATIVE: CASE EVENT DATE: 201504
